FAERS Safety Report 19434052 (Version 3)
Quarter: 2021Q3

REPORT INFORMATION
  Report Type: Report from Study
  Country: IT (occurrence: IT)
  Receive Date: 20210617
  Receipt Date: 20210706
  Transmission Date: 20211014
  Serious: Yes (Hospitalization, Other)
  Sender: FDA-Public Use
  Company Number: IT-BRISTOL-MYERS SQUIBB COMPANY-BMS-2021-002308

PATIENT
  Age: 59 Year
  Sex: Male
  Weight: 84 kg

DRUGS (6)
  1. MESALAZINE [Concomitant]
     Active Substance: MESALAMINE
     Indication: DIARRHOEA
     Dosage: 1200 MILLIGRAM, QD
     Route: 048
     Dates: start: 20200720
  2. PANTOPRAZOLE [Concomitant]
     Active Substance: PANTOPRAZOLE
     Indication: PRODUCT USED FOR UNKNOWN INDICATION
     Dosage: 20 MILLIGRAM
     Route: 048
     Dates: start: 201909
  3. DEFLAN [Concomitant]
     Active Substance: DEFLAZACORT
     Indication: DIARRHOEA
     Dosage: 30 MILLIGRAM, QD
     Route: 048
     Dates: start: 20201114
  4. NIVOLUMAB [Suspect]
     Active Substance: NIVOLUMAB
     Indication: MALIGNANT MELANOMA
     Dosage: 100 MILLILITER
     Route: 042
     Dates: start: 20191218, end: 20201104
  5. DEFLAN [Concomitant]
     Active Substance: DEFLAZACORT
     Dosage: 60 MILLIGRAM
     Route: 048
     Dates: start: 20201218, end: 20210109
  6. EUTIROX [Concomitant]
     Active Substance: LEVOTHYROXINE SODIUM
     Indication: PRODUCT USED FOR UNKNOWN INDICATION
     Dosage: 75 MICROGRAM
     Route: 048
     Dates: start: 20200621

REACTIONS (1)
  - Colitis ulcerative [Recovered/Resolved]

NARRATIVE: CASE EVENT DATE: 20210108
